FAERS Safety Report 9454246 (Version 1)
Quarter: 2013Q3

REPORT INFORMATION
  Report Type: Spontaneous
  Country: US (occurrence: None)
  Receive Date: 20130807
  Receipt Date: 20130807
  Transmission Date: 20140515
  Serious: Yes (Hospitalization, Other)
  Sender: FDA-Public Use
  Company Number: 2013P1014467

PATIENT
  Age: 83 Year
  Sex: Male

DRUGS (6)
  1. INFUMORPH [Suspect]
     Indication: MUSCLE SPASTICITY
     Route: 037
     Dates: start: 20020323
  2. MS-CONTIN [Suspect]
     Indication: BREAKTHROUGH PAIN
     Route: 048
     Dates: start: 20130530
  3. MORPHINE IR [Suspect]
     Dosage: 15 MG; Q6H PRN; PO
     Route: 048
     Dates: start: 20130530
  4. DIAZEPAM [Concomitant]
  5. OMEPRAZOLE [Concomitant]
  6. TOLTERODINE [Concomitant]

REACTIONS (9)
  - Mental status changes [None]
  - Respiratory failure [None]
  - Delirium [None]
  - Pneumonia aspiration [None]
  - Respiratory distress [None]
  - Dysphagia [None]
  - Cognitive disorder [None]
  - Hyponatraemia [None]
  - Off label use [None]
